FAERS Safety Report 8347969-0 (Version None)
Quarter: 2012Q2

REPORT INFORMATION
  Report Type: 
  Country: None (occurrence: None)
  Receive Date: 20120509
  Receipt Date: 20120504
  Transmission Date: 20120825
  Serious: Yes (Death, Other)
  Sender: FDA-Public Use
  Company Number: DE-ELI_LILLY_AND_COMPANY-DE201205002532

PATIENT
  Age: 59 Year
  Sex: Female

DRUGS (2)
  1. IPILIMUMAB [Concomitant]
     Indication: METASTASIS
     Dosage: 3 MG/KG, UNK
     Dates: start: 20110719, end: 20110902
  2. GEMZAR [Suspect]

REACTIONS (4)
  - PANCYTOPENIA [None]
  - DIARRHOEA HAEMORRHAGIC [None]
  - NEOPLASM PROGRESSION [None]
  - COLITIS [None]
